FAERS Safety Report 17930375 (Version 2)
Quarter: 2020Q2

REPORT INFORMATION
  Report Type: Report from Study
  Country: FR (occurrence: FR)
  Receive Date: 20200623
  Receipt Date: 20200626
  Transmission Date: 20200714
  Serious: Yes (Death)
  Sender: FDA-Public Use
  Company Number: FR-PFIZER INC-2020240901

PATIENT

DRUGS (5)
  1. FLUOROURACIL. [Suspect]
     Active Substance: FLUOROURACIL
     Dosage: 2400 MG/M2 INFUSED OVER 46 HOURS
     Route: 042
  2. FLUOROURACIL. [Suspect]
     Active Substance: FLUOROURACIL
     Indication: GASTROOESOPHAGEAL CANCER
     Dosage: 400 MG/M2, BOLUS
     Route: 040
  3. OXALIPLATIN. [Suspect]
     Active Substance: OXALIPLATIN
     Indication: GASTROOESOPHAGEAL CANCER
     Dosage: 85 MG/M2, CYCLIC  (IN 2-H INFUSION)
     Route: 042
  4. FOLINIC ACID [Suspect]
     Active Substance: LEUCOVORIN
     Indication: GASTROOESOPHAGEAL CANCER
     Dosage: 400 MG/M2, CYCLIC  (IN 2-H INFUSION)
     Route: 042
  5. RILOTUMUMAB [Suspect]
     Active Substance: RILOTUMUMAB
     Indication: GASTROOESOPHAGEAL CANCER
     Dosage: 10 MG/KG (10 MG/KG IN 1-H INFUSION),EVERY 2 WEEKS
     Route: 042

REACTIONS (1)
  - Gastrointestinal haemorrhage [Fatal]
